FAERS Safety Report 12179922 (Version 1)
Quarter: 2016Q1

REPORT INFORMATION
  Report Type: Spontaneous
  Country: US (occurrence: None)
  Receive Date: 20160314
  Receipt Date: 20160314
  Transmission Date: 20160526
  Serious: Yes (Hospitalization)
  Sender: FDA-Public Use
  Company Number: None

PATIENT
  Age: 27 Year
  Sex: Female

DRUGS (2)
  1. ENOXAPARIN SYRINGE 100MG/1ML TEVA [Suspect]
     Active Substance: ENOXAPARIN
     Indication: DEEP VEIN THROMBOSIS
     Route: 058
     Dates: start: 20160305
  2. ENOXAPARIN SYRINGE 100MG/1ML TEVA [Suspect]
     Active Substance: ENOXAPARIN
     Indication: EMBOLISM
     Route: 058
     Dates: start: 20160305

REACTIONS (2)
  - Spleen disorder [None]
  - Thrombosis [None]

NARRATIVE: CASE EVENT DATE: 20160305
